FAERS Safety Report 25240417 (Version 1)
Quarter: 2025Q2

REPORT INFORMATION
  Report Type: Spontaneous
  Country: US (occurrence: US)
  Receive Date: 20250425
  Receipt Date: 20250425
  Transmission Date: 20250716
  Serious: Yes (Other)
  Sender: BRAINTREE
  Company Number: US-BRAINTREE LABORATORIES, INC.-2025BTE00234

PATIENT
  Age: 74 Year
  Sex: Female
  Weight: 54.422 kg

DRUGS (1)
  1. NULYTELY [Suspect]
     Active Substance: POLYETHYLENE GLYCOL 3350\POTASSIUM CHLORIDE\SODIUM BICARBONATE\SODIUM CHLORIDE
     Indication: Colonoscopy
     Route: 048
     Dates: start: 20150715, end: 20150715

REACTIONS (16)
  - Meniere^s disease [Unknown]
  - Pulmonary fibrosis [Not Recovered/Not Resolved]
  - Migraine [Unknown]
  - Pyrexia [Unknown]
  - Chills [Unknown]
  - Gastrointestinal pain [Unknown]
  - Throat irritation [Unknown]
  - Burn of internal organs [Unknown]
  - Nosocomial infection [Recovered/Resolved]
  - Gastrointestinal disorder [Not Recovered/Not Resolved]
  - Gastrooesophageal reflux disease [Not Recovered/Not Resolved]
  - Tooth erosion [Not Recovered/Not Resolved]
  - Depressed mood [Not Recovered/Not Resolved]
  - Chronic obstructive pulmonary disease [Not Recovered/Not Resolved]
  - Asthma [Not Recovered/Not Resolved]
  - Vomiting [Unknown]

NARRATIVE: CASE EVENT DATE: 20150715
